FAERS Safety Report 8965115 (Version 1)
Quarter: 2012Q4

REPORT INFORMATION
  Report Type: 
  Country: US (occurrence: US)
  Receive Date: 20121213
  Receipt Date: 20121213
  Transmission Date: 20130627
  Serious: Yes (Other)
  Sender: FDA-Public Use
  Company Number: US-BAYER-2012-129809

PATIENT
  Age: 26 Year
  Sex: Female

DRUGS (2)
  1. BEYAZ [Suspect]
     Dosage: UNK
     Dates: start: 20110214, end: 20110926
  2. VENLAFAXINE [Concomitant]

REACTIONS (1)
  - Deep vein thrombosis [Recovered/Resolved]
